FAERS Safety Report 8226202-4 (Version None)
Quarter: 2012Q1

REPORT INFORMATION
  Report Type: 
  Country: None (occurrence: None)
  Receive Date: 20120307
  Receipt Date: 20100810
  Transmission Date: 20120608
  Serious: Yes (Death, Other)
  Sender: FDA-Public Use
  Company Number: PHHY2010US44615

PATIENT
  Age: 60 Year
  Sex: Male
  Weight: 113.2 kg

DRUGS (2)
  1. SUTENT [Concomitant]
  2. AFINITOR [Suspect]
     Indication: METASTATIC RENAL CELL CARCINOMA
     Dosage: 10 MG, QD, ORAL; 5 MG, QD, ORAL
     Route: 048
     Dates: start: 20090301, end: 20090501

REACTIONS (4)
  - PNEUMONIA [None]
  - NEOPLASM MALIGNANT [None]
  - RESPIRATORY FAILURE [None]
  - HYPERTENSION [None]
